FAERS Safety Report 8020957-X (Version None)
Quarter: 2011Q4

REPORT INFORMATION
  Report Type: 
  Country: None (occurrence: None)
  Receive Date: 20111228
  Receipt Date: 20111221
  Transmission Date: 20120403
  Serious: Yes (Other)
  Sender: FDA-Public Use
  Company Number: ADR-2011-11243

PATIENT
  Sex: Male

DRUGS (2)
  1. XANAX [Concomitant]
  2. LIORESAL [Suspect]
     Indication: MUSCLE SPASTICITY
     Dosage: UNK MCG, DAILY, INTRATH
     Route: 037

REACTIONS (3)
  - BLADDER DISORDER [None]
  - DIARRHOEA [None]
  - MEDICAL DEVICE COMPLICATION [None]
